FAERS Safety Report 23497968 (Version 1)
Quarter: 2024Q1

REPORT INFORMATION
  Report Type: Spontaneous
  Country: US (occurrence: None)
  Receive Date: 20240207
  Receipt Date: 20240207
  Transmission Date: 20240410
  Serious: No
  Sender: FDA-Public Use
  Company Number: US-ROCHE-3316944

PATIENT
  Age: 61 Year
  Sex: Female
  Weight: 91.9 kg

DRUGS (25)
  1. XOLAIR [Suspect]
     Active Substance: OMALIZUMAB
     Indication: Asthma
     Dosage: STRENGTH: 150MG/ML
     Route: 058
  2. XOLAIR [Suspect]
     Active Substance: OMALIZUMAB
  3. XOLAIR [Suspect]
     Active Substance: OMALIZUMAB
  4. XOLAIR [Suspect]
     Active Substance: OMALIZUMAB
     Route: 058
     Dates: start: 2019
  5. XOLAIR [Suspect]
     Active Substance: OMALIZUMAB
  6. XOLAIR [Suspect]
     Active Substance: OMALIZUMAB
  7. ALBUTEROL SULFATE [Concomitant]
     Active Substance: ALBUTEROL SULFATE
     Dosage: 2 PUFFS BY INHALATION 2TIMES A DAY
     Dates: start: 20211029
  8. APIXABAN [Concomitant]
     Active Substance: APIXABAN
     Dosage: 1 TABLET BY MOUTH
     Dates: start: 20220509
  9. ATORVASTATIN [Concomitant]
     Active Substance: ATORVASTATIN
     Dosage: 1 TABLET BY MOUTH DAILY IN EVENING
  10. BETAMETHASONE [Concomitant]
     Active Substance: BETAMETHASONE\BETAMETHASONE DIPROPIONATE
     Dosage: APPLY ON EFFECTED AREA TWICE DAILY
  11. CETIRIZINE [Concomitant]
     Active Substance: CETIRIZINE HYDROCHLORIDE
     Dosage: BY MOUTH EVERY MORNING
     Route: 048
  12. VITAMIN D3 [Concomitant]
     Active Substance: CHOLECALCIFEROL
     Dosage: 500 UNIT, 1 CAPSULE BY MOUTH EVERY MORNING
  13. DIAZEPAM [Concomitant]
     Active Substance: DIAZEPAM
     Dosage: TAKE 1 TAB BY MOUTH EVERY 8HRS AS NEEDED
     Route: 048
     Dates: start: 20220309
  14. DIPHENHYDRAMINE [Concomitant]
     Active Substance: DIPHENHYDRAMINE
     Dosage: TAKE 1 CAPSULE BY MOUTH AS NEEDED
  15. FLUOCINOLONE ACETONIDE [Concomitant]
     Active Substance: FLUOCINOLONE ACETONIDE
     Indication: Pruritus
     Dosage: 4 DROPS IN ONE OF THE BOTH EARS
  16. LANSOPRAZOLE [Concomitant]
     Active Substance: LANSOPRAZOLE
     Dosage: 1 CAPSULE BY MOUTH EVERY MORNING
     Route: 048
  17. LINACLOTIDE [Concomitant]
     Active Substance: LINACLOTIDE
     Dosage: 1 CAPSULE BY MOUTH
     Route: 048
  18. MECLIZINE [Concomitant]
     Active Substance: MECLIZINE HYDROCHLORIDE
     Indication: Dizziness
     Dosage: TAKE 1 TAB BY MOUTH EVERY 8HRS AS NEEDED
     Route: 048
  19. METOPROLOL TARTRATE [Concomitant]
     Active Substance: METOPROLOL TARTRATE
     Dosage: 1 TABLET BY MOUTH
     Dates: start: 20230105
  20. OLMESARTAN [Concomitant]
     Active Substance: OLMESARTAN
     Dosage: 1/2 TABLET BY MOUTH DAILY
     Dates: start: 20230109
  21. ONDANSETRON [Concomitant]
     Active Substance: ONDANSETRON
     Dosage: 1 TABLET BY MOUTH EVERY 8 HRS AS NEEDED
     Route: 048
     Dates: start: 20221221
  22. TIOTROPIUM BROMIDE [Concomitant]
     Active Substance: TIOTROPIUM BROMIDE
     Dosage: 2 PUFFS BY MOUTH
     Route: 048
     Dates: start: 20230125
  23. TRIAMCINOLONE [Concomitant]
     Active Substance: TRIAMCINOLONE
     Dosage: 2 SPRAYS BY NASAL ROUTE
     Route: 045
     Dates: start: 20220928
  24. DYAZIDE [Concomitant]
     Active Substance: HYDROCHLOROTHIAZIDE\TRIAMTERENE
     Dosage: 37.5-25MG BY MOUTH
     Dates: start: 20220627
  25. VORTIOXETINE [Concomitant]
     Active Substance: VORTIOXETINE
     Dates: start: 20230203, end: 20230303

REACTIONS (3)
  - Bronchitis [Unknown]
  - Pain [Unknown]
  - Cough [Unknown]
